FAERS Safety Report 17812785 (Version 4)
Quarter: 2020Q2

REPORT INFORMATION
  Report Type: Spontaneous
  Country: CN (occurrence: CN)
  Receive Date: 20200521
  Receipt Date: 20200605
  Transmission Date: 20200714
  Serious: Yes (Other)
  Sender: FDA-Public Use
  Company Number: CN-009507513-2005CHN004895

PATIENT
  Age: 40 Year
  Sex: Female

DRUGS (4)
  1. DIPROSPAN [Suspect]
     Active Substance: BETAMETHASONE DIPROPIONATE\BETAMETHASONE SODIUM PHOSPHATE
     Indication: DERMATITIS ALLERGIC
     Dosage: INTRAMUSCULAR INJECTION; 1ML:5MG:2MG
     Route: 058
     Dates: start: 20200511
  2. FEXOFENADINE HYDROCHLORIDE. [Concomitant]
     Active Substance: FEXOFENADINE HYDROCHLORIDE
     Dosage: 30 MG/TABLET, 28 TABLETS
     Route: 048
  3. LEVOCETIRIZINE [Concomitant]
     Active Substance: LEVOCETIRIZINE
     Dosage: 5 MG, 7 TABLETS
     Route: 048
  4. CALAMINE LOTION [Concomitant]
     Active Substance: CALAMINE LOTION
     Dosage: 100 ML PLUS COTTON SWAB

REACTIONS (5)
  - Chest discomfort [Not Recovered/Not Resolved]
  - Tachypnoea [Unknown]
  - Heart rate increased [Unknown]
  - Muscular weakness [Recovering/Resolving]
  - Dyspnoea [Not Recovered/Not Resolved]

NARRATIVE: CASE EVENT DATE: 20200511
